FAERS Safety Report 17363975 (Version 2)
Quarter: 2020Q1

REPORT INFORMATION
  Report Type: Report from Study
  Country: GR (occurrence: GR)
  Receive Date: 20200203
  Receipt Date: 20200303
  Transmission Date: 20200409
  Serious: Yes (Hospitalization)
  Sender: FDA-Public Use
  Company Number: GR-ROCHE-2536792

PATIENT
  Age: 84 Year
  Sex: Female
  Weight: 73 kg

DRUGS (17)
  1. ATEZOLIZUMAB. [Suspect]
     Active Substance: ATEZOLIZUMAB
     Indication: MALIGNANT MELANOMA
     Dosage: DATE OF MOST RECENT DOSE (840 MG) OF ATEZOLIZUMAB PRIOR TO EVENT ONSET: 13/JAN/2020
     Route: 042
     Dates: start: 20181218
  2. SOLIAN [Concomitant]
     Active Substance: AMISULPRIDE
     Indication: DEPRESSION
     Route: 065
     Dates: end: 20191223
  3. RIVANEL [Concomitant]
     Indication: DEPRESSION
     Route: 065
     Dates: end: 20200128
  4. MODULAIR [Concomitant]
     Indication: CHRONIC RESPIRATORY DISEASE
     Route: 065
     Dates: start: 20190215
  5. MENTIFAR [Concomitant]
     Indication: DEPRESSION
     Route: 065
     Dates: end: 20200128
  6. PREFUCET [Concomitant]
     Indication: DEPRESSION
  7. FOSAVANCE [Concomitant]
     Active Substance: ALENDRONATE SODIUM\CHOLECALCIFEROL
     Indication: OSTEOPOROSIS
     Route: 065
     Dates: end: 20200128
  8. ATROST [Concomitant]
     Active Substance: ATORVASTATIN CALCIUM
     Indication: HYPERLIPIDAEMIA
  9. CLAUDIASIL [Concomitant]
     Indication: HIP ARTHROPLASTY
     Route: 065
     Dates: end: 20200128
  10. CALCIORAL [CALCIUM CARBONATE] [Concomitant]
     Indication: OSTEOPOROSIS
  11. MADOPAR [Concomitant]
     Active Substance: BENSERAZIDE HYDROCHLORIDE\LEVODOPA
     Indication: DEPRESSION
     Route: 065
     Dates: start: 20191230
  12. NOOTROP [Concomitant]
     Active Substance: PIRACETAM
     Indication: DEPRESSION
  13. ZANTAC [Concomitant]
     Active Substance: RANITIDINE HYDROCHLORIDE
  14. FOSTER [Concomitant]
     Active Substance: BECLOMETHASONE\FORMOTEROL
     Indication: CHRONIC RESPIRATORY DISEASE
     Route: 065
     Dates: start: 20190215
  15. DULOXETINE. [Concomitant]
     Active Substance: DULOXETINE
     Indication: DEPRESSION
     Route: 065
     Dates: start: 20191223
  16. KLARICID [CLARITHROMYCIN] [Concomitant]
     Active Substance: CLARITHROMYCIN
     Indication: COUGH
     Route: 065
     Dates: start: 20191231, end: 20200105
  17. COBIMETINIB. [Suspect]
     Active Substance: COBIMETINIB
     Indication: MALIGNANT MELANOMA
     Dosage: DATE OF MOST RECENT DOSE (60MG) OF COBIMETINIB PRIOR TO EVENT ONSET: 26/JAN/2020
     Route: 048
     Dates: start: 20181218

REACTIONS (1)
  - Autoimmune nephritis [Not Recovered/Not Resolved]

NARRATIVE: CASE EVENT DATE: 20200113
